FAERS Safety Report 4650271-1 (Version None)
Quarter: 2005Q2

REPORT INFORMATION
  Report Type: 
  Country: None (occurrence: None)
  Receive Date: 20050428
  Receipt Date: 20050415
  Transmission Date: 20051028
  Serious: Yes (Hospitalization, Other)
  Sender: FDA-Public Use
  Company Number: KII-2005-0016077

PATIENT
  Age: 48 Year
  Sex: Female

DRUGS (13)
  1. OXYCODONE HCL [Suspect]
     Indication: PAIN
     Dosage: DAILY, ORAL
     Route: 048
  2. MORPHINE SULFATE [Suspect]
     Indication: PAIN
     Dosage: QID,
  3. CARISOPRODOL [Suspect]
     Dosage: QID, ORAL
     Route: 048
  4. GABAPENTIN [Suspect]
     Dosage: TID, ORAL
     Route: 048
  5. ANTIDEPRESSANTS () [Suspect]
     Dosage: ORAL
     Route: 048
  6. ORAL ANTIDIABETICS () [Suspect]
     Dosage: ORAL
     Route: 048
  7. TRIAMTERENE (TRIAMTERENE) [Suspect]
  8. PROTON PUMP INHIBITOR () [Suspect]
  9. THYROID PREPARATIONS () [Suspect]
  10. SERUMLIPIDREDUCING AGENTS () [Suspect]
  11. ESTRADIOL [Suspect]
  12. AMPHETAMINE SULFATE TAB [Suspect]
  13. BARBITURATES () [Suspect]

REACTIONS (11)
  - AGITATION [None]
  - ANXIETY [None]
  - BLOOD PH DECREASED [None]
  - BLOOD PH INCREASED [None]
  - BLOOD POTASSIUM INCREASED [None]
  - COMA [None]
  - DROOLING [None]
  - ELECTROCARDIOGRAM ST SEGMENT ELEVATION [None]
  - HYPERHIDROSIS [None]
  - OXYGEN SATURATION DECREASED [None]
  - TREMOR [None]
